FAERS Safety Report 21142426 (Version 1)
Quarter: 2022Q3

REPORT INFORMATION
  Report Type: Spontaneous
  Country: FR (occurrence: FR)
  Receive Date: 20220728
  Receipt Date: 20220728
  Transmission Date: 20221027
  Serious: Yes (Hospitalization, Other)
  Sender: FDA-Public Use
  Company Number: None

PATIENT

DRUGS (3)
  1. BUPRENORPHINE [Suspect]
     Active Substance: BUPRENORPHINE
     Indication: Drug dependence
     Dosage: 8 MILLIGRAM, QD ( DIVIDED INTO 2 TO 3 INJECTIONS)
     Route: 042
     Dates: start: 20210813
  2. BUPRENORPHINE [Suspect]
     Active Substance: BUPRENORPHINE
     Dosage: 8 MILLIGRAM, QD ONCE
     Route: 060
     Dates: start: 20210824
  3. MORPHINE [Suspect]
     Active Substance: MORPHINE
     Indication: Drug dependence
     Dosage: UNK
     Route: 042
     Dates: start: 20210813

REACTIONS (3)
  - Intervertebral discitis [Recovered/Resolved]
  - Product prescribing issue [Recovered/Resolved]
  - Drug withdrawal syndrome [Recovered/Resolved]

NARRATIVE: CASE EVENT DATE: 20210714
